FAERS Safety Report 6714859-6 (Version None)
Quarter: 2010Q2

REPORT INFORMATION
  Report Type: 
  Country: None (occurrence: None)
  Receive Date: 20100506
  Receipt Date: 20100506
  Transmission Date: 20101027
  Serious: No
  Sender: FDA-Public Use
  Company Number: None

PATIENT
  Age: 14 Month
  Sex: Female
  Weight: 9.0719 kg

DRUGS (1)
  1. TYLENOL INFANT DROPS 80MG MCNEIL CONSUMER HEALTH CARE [Suspect]
     Indication: TEETHING
     Dosage: 0.8 ML EVERY SIX HOURS
     Dates: start: 20100502, end: 20100505

REACTIONS (2)
  - PRODUCT QUALITY ISSUE [None]
  - PYREXIA [None]
